FAERS Safety Report 7461883-4 (Version None)
Quarter: 2011Q2

REPORT INFORMATION
  Report Type: 
  Country: None (occurrence: None)
  Receive Date: 20110428
  Receipt Date: 20110408
  Transmission Date: 20111010
  Serious: Yes (Other)
  Sender: FDA-Public Use
  Company Number: JPI-P-014525

PATIENT
  Age: 34 Year
  Sex: Female
  Weight: 56.246 kg

DRUGS (2)
  1. XYREM [Suspect]
     Indication: SOMNOLENCE
     Dosage: 6, 12  GM (3, 6 GM, 2 IN 1 D), ORAL
     Route: 048
     Dates: start: 20060425
  2. XYREM [Suspect]
     Indication: CATAPLEXY
     Dosage: 6, 12  GM (3, 6 GM, 2 IN 1 D), ORAL
     Route: 048
     Dates: start: 20060425

REACTIONS (2)
  - ROAD TRAFFIC ACCIDENT [None]
  - INTERVERTEBRAL DISC PROTRUSION [None]
